FAERS Safety Report 13672185 (Version 4)
Quarter: 2017Q3

REPORT INFORMATION
  Report Type: Report from Study
  Country: US (occurrence: US)
  Receive Date: 20170621
  Receipt Date: 20170905
  Transmission Date: 20171127
  Serious: Yes (Other)
  Sender: FDA-Public Use
  Company Number: US-BAYER-2017-107131

PATIENT
  Age: 64 Year
  Sex: Female

DRUGS (3)
  1. STIVARGA [Suspect]
     Active Substance: REGORAFENIB
     Indication: COLORECTAL CANCER
     Dosage: DAILY DOSE 160 MG
     Route: 048
     Dates: start: 20170601, end: 20170707
  2. STIVARGA [Suspect]
     Active Substance: REGORAFENIB
     Indication: COLORECTAL CANCER
     Dosage: DAILY DOSE 120 MG
     Route: 048
     Dates: start: 20170731, end: 20170821
  3. STIVARGA [Suspect]
     Active Substance: REGORAFENIB
     Indication: COLORECTAL CANCER
     Dosage: DAILY DOSE 160 MG
     Route: 048
     Dates: start: 20170714, end: 20170727

REACTIONS (19)
  - Somnolence [Not Recovered/Not Resolved]
  - Hypertension [None]
  - Metastasis [None]
  - Hypokalaemia [None]
  - Neuropathy peripheral [None]
  - Somnolence [None]
  - Colorectal cancer [None]
  - Neuropathy peripheral [Not Recovered/Not Resolved]
  - Dysphonia [Not Recovered/Not Resolved]
  - Fatigue [None]
  - Thrombocytopenia [None]
  - Headache [None]
  - Dehydration [None]
  - Urinary tract infection [None]
  - Fatigue [Not Recovered/Not Resolved]
  - Hypocalcaemia [None]
  - Stress [None]
  - Stomatitis [Not Recovered/Not Resolved]
  - Hypomagnesaemia [None]

NARRATIVE: CASE EVENT DATE: 2017
